FAERS Safety Report 8512696-3 (Version None)
Quarter: 2012Q3

REPORT INFORMATION
  Report Type: 
  Country: None (occurrence: None)
  Receive Date: 20120716
  Receipt Date: 20120709
  Transmission Date: 20120928
  Serious: Yes (Hospitalization, Other)
  Sender: FDA-Public Use
  Company Number: US-PFIZER INC-2012056748

PATIENT
  Sex: Female

DRUGS (2)
  1. DETROL LA [Suspect]
     Dosage: UNK, DAILY
  2. DETROL LA [Suspect]
     Dosage: UNK, 2X/DAY

REACTIONS (7)
  - BLADDER DISORDER [None]
  - JOINT INJURY [None]
  - LOWER LIMB FRACTURE [None]
  - FALL [None]
  - URINARY INCONTINENCE [None]
  - RENAL DISORDER [None]
  - BLOOD DISORDER [None]
